FAERS Safety Report 5375563-2 (Version None)
Quarter: 2007Q2

REPORT INFORMATION
  Report Type: 
  Country: None (occurrence: None)
  Receive Date: 20070629
  Receipt Date: 20070619
  Transmission Date: 20071010
  Serious: Yes (Other)
  Sender: FDA-Public Use
  Company Number: US-PFIZER INC-2007051427

PATIENT
  Sex: Female
  Weight: 50.8 kg

DRUGS (17)
  1. CHANTIX [Suspect]
     Indication: SMOKING CESSATION THERAPY
     Route: 048
  2. DETROL LA [Suspect]
     Indication: BLADDER DISORDER
     Route: 048
     Dates: start: 20070101, end: 20070101
  3. LORTAB [Suspect]
     Indication: MUSCULOSKELETAL PAIN
  4. LORTAB [Suspect]
     Indication: PAIN IN EXTREMITY
  5. AVALIDE [Suspect]
  6. AGGRENOX [Concomitant]
  7. PROZAC [Concomitant]
     Indication: DEPRESSION
  8. XANAX [Concomitant]
     Indication: NERVOUSNESS
  9. SYNTHROID [Concomitant]
     Indication: HYPOTHYROIDISM
  10. GABAPENTIN [Concomitant]
     Indication: NEUROPATHY
  11. TRIAMTERENE [Concomitant]
  12. POLYETHYLENE GLYCOL [Concomitant]
  13. METOCLOPRAMIDE [Concomitant]
     Indication: NAUSEA
  14. METOCLOPRAMIDE [Concomitant]
     Indication: VOMITING
  15. OMEPRAZOLE [Concomitant]
     Indication: ULCER
  16. OMEPRAZOLE [Concomitant]
     Indication: GASTROOESOPHAGEAL REFLUX DISEASE
  17. NITROGLYCERIN [Concomitant]
     Indication: CHEST PAIN
     Dosage: FREQ:AS NEEDED

REACTIONS (15)
  - ABDOMINAL DISTENSION [None]
  - BLOOD PRESSURE DECREASED [None]
  - CHEST DISCOMFORT [None]
  - CHEST PAIN [None]
  - CONSTIPATION [None]
  - DEPRESSION [None]
  - DYSPNOEA [None]
  - HEAD INJURY [None]
  - HYPOAESTHESIA [None]
  - INSOMNIA [None]
  - LOSS OF CONSCIOUSNESS [None]
  - MUSCULOSKELETAL PAIN [None]
  - NAUSEA [None]
  - PAIN [None]
  - PAIN IN EXTREMITY [None]
